FAERS Safety Report 7249919-7 (Version None)
Quarter: 2011Q1

REPORT INFORMATION
  Report Type: 
  Country: None (occurrence: None)
  Receive Date: 20110128
  Receipt Date: 20100913
  Transmission Date: 20110831
  Serious: No
  Sender: FDA-Public Use
  Company Number: A0880847A

PATIENT
  Sex: Female

DRUGS (2)
  1. WELLBUTRIN [Suspect]
     Dosage: 75MG PER DAY
     Route: 048
     Dates: start: 20071201
  2. PRENATAL VITAMINS [Concomitant]

REACTIONS (5)
  - WEIGHT DECREASED [None]
  - DRUG EXPOSURE DURING PREGNANCY [None]
  - DIZZINESS [None]
  - VOMITING [None]
  - NAUSEA [None]
